FAERS Safety Report 18709428 (Version 2)
Quarter: 2021Q1

REPORT INFORMATION
  Report Type: Spontaneous
  Country: BE (occurrence: BE)
  Receive Date: 20210106
  Receipt Date: 20210112
  Transmission Date: 20210419
  Serious: Yes (Hospitalization, Other)
  Sender: FDA-Public Use
  Company Number: BE-GILEAD-2020-0511243

PATIENT
  Age: 40 Year
  Sex: Male

DRUGS (2)
  1. ELVITEGRAVIR/COBICISTAT/EMTRICITABINE/TENOFOVIR ALAFENAMIDE [Suspect]
     Active Substance: COBICISTAT\ELVITEGRAVIR\EMTRICITABINE\TENOFOVIR
     Indication: HIV TEST POSITIVE
     Dosage: 60 TABLETS GENVOYA
     Route: 065
  2. PARACETAMOL [Suspect]
     Active Substance: ACETAMINOPHEN
     Indication: PRODUCT USED FOR UNKNOWN INDICATION
     Dosage: 10 G
     Route: 065

REACTIONS (6)
  - Somnolence [Recovering/Resolving]
  - Poisoning [Unknown]
  - Haemodynamic instability [Recovering/Resolving]
  - Hepatic enzyme increased [Recovering/Resolving]
  - Renal impairment [Recovered/Resolved]
  - Overdose [Unknown]
